FAERS Safety Report 18853895 (Version 1)
Quarter: 2021Q1

REPORT INFORMATION
  Report Type: Spontaneous
  Country: US (occurrence: US)
  Receive Date: 20210205
  Receipt Date: 20210205
  Transmission Date: 20210420
  Serious: No
  Sender: FDA-Public Use
  Company Number: US-PFIZER INC-2021092633

PATIENT
  Age: 60 Year
  Sex: Female
  Weight: 64.85 kg

DRUGS (7)
  1. MAGNESIUM [Concomitant]
     Active Substance: MAGNESIUM
     Dosage: 100 MG
  2. YUVAFEM [Concomitant]
     Active Substance: ESTRADIOL HEMIHYDRATE
     Dosage: 10 UG
  3. ATORVASTATIN CALCIUM. [Concomitant]
     Active Substance: ATORVASTATIN CALCIUM
     Dosage: 10 MG
  4. INLYTA [Suspect]
     Active Substance: AXITINIB
     Indication: RENAL CANCER
     Dosage: 5 MG, 2X/DAY (1 TABLET ORALLY, EVERY 12 HOURS)
     Route: 048
     Dates: start: 20201105
  5. ESTRACE [Concomitant]
     Active Substance: ESTRADIOL
     Dosage: UNK
  6. DEXTROMETHORPHAN/GUAIFENESIN/PHENYLEPHRINE [Concomitant]
     Dosage: UNK
  7. AMLODIPINE BESYLATE. [Concomitant]
     Active Substance: AMLODIPINE BESYLATE
     Dosage: 10 MG

REACTIONS (1)
  - Fatigue [Unknown]
